FAERS Safety Report 13448511 (Version 2)
Quarter: 2017Q2

REPORT INFORMATION
  Report Type: Spontaneous
  Country: JP (occurrence: JP)
  Receive Date: 20170417
  Receipt Date: 20170425
  Transmission Date: 20170830
  Serious: Yes (Life-Threatening, Hospitalization)
  Sender: FDA-Public Use
  Company Number: JP-BAYER-2017-061443

PATIENT
  Age: 82 Year
  Sex: Male
  Weight: 72 kg

DRUGS (7)
  1. XOFIGO [Suspect]
     Active Substance: RADIUM RA-223 DICHLORIDE
     Indication: PROSTATE CANCER STAGE IV
     Dosage: 4 MBQ, ONCE
     Route: 042
     Dates: start: 20161220, end: 20161220
  2. LOXOPROFEN SODIUM [Concomitant]
     Active Substance: LOXOPROFEN SODIUM
     Route: 048
  3. XOFIGO [Suspect]
     Active Substance: RADIUM RA-223 DICHLORIDE
     Indication: METASTASES TO BONE
     Dosage: 4 MBQ, ONCE
     Route: 042
     Dates: start: 20170117, end: 20170117
  4. OXINORM [OXYCODONE HYDROCHLORIDE] [Concomitant]
     Route: 048
  5. AZULENE-GLUTAMINE [Concomitant]
     Dosage: UNK
     Route: 048
  6. XOFIGO [Suspect]
     Active Substance: RADIUM RA-223 DICHLORIDE
     Indication: PROSTATE CANCER STAGE IV
     Dosage: 4 MBQ, ONCE
     Route: 042
     Dates: start: 20170214, end: 20170214
  7. NEXIUM [Concomitant]
     Active Substance: ESOMEPRAZOLE MAGNESIUM
     Route: 048

REACTIONS (3)
  - Hepatic function abnormal [Recovering/Resolving]
  - Bone pain [Not Recovered/Not Resolved]
  - Pancytopenia [Not Recovered/Not Resolved]

NARRATIVE: CASE EVENT DATE: 20170224
